FAERS Safety Report 7025388-7 (Version None)
Quarter: 2010Q4

REPORT INFORMATION
  Report Type: 
  Country: None (occurrence: None)
  Receive Date: 20101001
  Receipt Date: 20100922
  Transmission Date: 20110411
  Serious: Yes (Other)
  Sender: FDA-Public Use
  Company Number: PHHY2010ZA63813

PATIENT
  Sex: Male
  Weight: 18.6 kg

DRUGS (1)
  1. GLEEVEC [Suspect]
     Indication: CHRONIC MYELOID LEUKAEMIA
     Dosage: 500 MG, UNK
     Dates: start: 20060705

REACTIONS (5)
  - BODY HEIGHT DECREASED [None]
  - DRUG LEVEL INCREASED [None]
  - GROWTH RETARDATION [None]
  - VOMITING [None]
  - WEIGHT DECREASED [None]
